FAERS Safety Report 9654359 (Version 1)
Quarter: 2013Q4

REPORT INFORMATION
  Report Type: Report from Study
  Country: US (occurrence: US)
  Receive Date: 20131029
  Receipt Date: 20131029
  Transmission Date: 20140711
  Serious: Yes (Hospitalization)
  Sender: FDA-Public Use
  Company Number: US-ROCHE-1294202

PATIENT
  Age: 70 Year
  Sex: Female
  Weight: 48.12 kg

DRUGS (2)
  1. RITUXAN [Suspect]
     Indication: NON-HODGKIN^S LYMPHOMA
     Route: 042
  2. RITUXAN [Suspect]
     Dosage: START DATE: 09/OCT/2013
     Route: 042

REACTIONS (3)
  - Splenomegaly [Recovered/Resolved]
  - Non-Hodgkin^s lymphoma [Unknown]
  - Alopecia [Not Recovered/Not Resolved]
